FAERS Safety Report 7495396-0 (Version None)
Quarter: 2011Q2

REPORT INFORMATION
  Report Type: 
  Country: None (occurrence: None)
  Receive Date: 20110513
  Receipt Date: 20101119
  Transmission Date: 20111010
  Serious: Yes (Hospitalization)
  Sender: FDA-Public Use
  Company Number: 2010-2399

PATIENT
  Age: 11 Year
  Sex: Male
  Weight: 27.5 kg

DRUGS (4)
  1. INCRELEX [Suspect]
     Indication: INSULIN-LIKE GROWTH FACTOR DECREASED
     Dosage: 0.16 MG/KG (0.08 MG/KG, 2 IN 1 D, SUBCUTANEOUS
     Route: 058
     Dates: start: 20081209
  2. BRONCHODILATORS (OTHER  RESPIRATORY SYSTEM PRODUCTS) [Concomitant]
  3. ANTIDEPRESSANTS (ANTIDEPRESSANTS) [Concomitant]
  4. ANTIBIOTICS (ANTIBIOTICS) [Concomitant]

REACTIONS (1)
  - HYDROCELE FEMALE [None]
